FAERS Safety Report 9825722 (Version 1)
Quarter: 2013Q4

REPORT INFORMATION
  Report Type: Spontaneous
  Country: US (occurrence: None)
  Receive Date: 20131028
  Receipt Date: 20131028
  Transmission Date: 20140711
  Serious: Yes (Other)
  Sender: FDA-Public Use
  Company Number: 2013US001844

PATIENT
  Age: 57 Year
  Sex: Male
  Weight: 81.01 kg

DRUGS (4)
  1. ICLUSIG [Suspect]
     Indication: CHRONIC MYELOID LEUKAEMIA
     Route: 048
     Dates: start: 20130312
  2. HYDROCHLOROTHIAZIDE (HYDROCHLOROTHIAZIDE) [Concomitant]
  3. ALLOPURINOL (ALLOPURINOL) [Concomitant]
  4. SIMVASTATIN (SIMVASTATIN) [Concomitant]

REACTIONS (6)
  - Skin exfoliation [None]
  - Skin discolouration [None]
  - Blister [None]
  - Hypertension [None]
  - Rash [None]
  - Dry skin [None]
